FAERS Safety Report 23370366 (Version 1)
Quarter: 2024Q1

REPORT INFORMATION
  Report Type: Spontaneous
  Country: US (occurrence: US)
  Receive Date: 20240105
  Receipt Date: 20240105
  Transmission Date: 20240410
  Serious: No
  Sender: FDA-Public Use
  Company Number: US-SA-SAC20231228000111

PATIENT
  Age: 64 Year
  Sex: Female
  Weight: 73 kg

DRUGS (2)
  1. DUPIXENT [Suspect]
     Active Substance: DUPILUMAB
     Indication: Dermatitis atopic
     Dosage: UNK
     Route: 065
  2. DUPIXENT [Suspect]
     Active Substance: DUPILUMAB
     Indication: Musculoskeletal disorder

REACTIONS (6)
  - Dermatitis atopic [Unknown]
  - Dry skin [Unknown]
  - Rash pruritic [Unknown]
  - Erythema [Unknown]
  - Skin irritation [Unknown]
  - Product use in unapproved indication [Unknown]
